FAERS Safety Report 26135779 (Version 1)
Quarter: 2025Q4

REPORT INFORMATION
  Report Type: Spontaneous
  Country: CA (occurrence: CA)
  Receive Date: 20251209
  Receipt Date: 20251209
  Transmission Date: 20260117
  Serious: Yes (Death, Other)
  Sender: NOVARTIS
  Company Number: CA-002147023-NVSC2025CA155834

PATIENT
  Sex: Male

DRUGS (15)
  1. IMATINIB [Suspect]
     Active Substance: IMATINIB
     Indication: Lymphocytic leukaemia
     Dosage: UNK
     Route: 065
     Dates: start: 20210309, end: 20230417
  2. IMATINIB [Suspect]
     Active Substance: IMATINIB
     Dosage: 600 MG, QD
     Route: 048
     Dates: start: 20230418, end: 20240807
  3. FUROSEMIDE [Concomitant]
     Active Substance: FUROSEMIDE
     Indication: Product used for unknown indication
     Dosage: UNK
     Route: 065
  4. DASATINIB [Concomitant]
     Active Substance: DASATINIB
     Indication: Lymphocytic leukaemia
     Dosage: UNK
     Route: 065
     Dates: start: 20240818, end: 20240822
  5. PONATINIB [Concomitant]
     Active Substance: PONATINIB
     Indication: Lymphocytic leukaemia
     Dosage: UNK
     Route: 065
     Dates: start: 20240818, end: 20240822
  6. PONATINIB [Concomitant]
     Active Substance: PONATINIB
     Dosage: 15 MG, QD
     Route: 048
     Dates: start: 20241006, end: 20250201
  7. BLINATUMOMAB [Concomitant]
     Active Substance: BLINATUMOMAB
     Indication: Lymphocytic leukaemia
     Dosage: UNK (LINATUMOMAB 28 MCG IV DAILY X 28 DAYS)
     Route: 042
     Dates: start: 20241006, end: 20250201
  8. INOTUZUMAB OZOGAMICIN [Concomitant]
     Active Substance: INOTUZUMAB OZOGAMICIN
     Indication: Lymphocytic leukaemia
     Dosage: UNK (0.8 MG/M2 DAY 1, 0.5 MG/M2 DAY 8 AND 0.5 MG/M2 DAY 15)
     Route: 065
     Dates: start: 20250731
  9. GABAPENTIN [Concomitant]
     Active Substance: GABAPENTIN
     Indication: Product used for unknown indication
     Dosage: UNK
     Route: 065
  10. ISAVUCONAZOLE [Concomitant]
     Active Substance: ISAVUCONAZOLE
     Indication: Product used for unknown indication
     Dosage: UNK
     Route: 065
  11. LEVOFLOXACIN [Concomitant]
     Active Substance: LEVOFLOXACIN
     Indication: Product used for unknown indication
     Dosage: UNK
     Route: 065
  12. PANTOPRAZOLE [Concomitant]
     Active Substance: PANTOPRAZOLE
     Indication: Product used for unknown indication
     Dosage: UNK
     Route: 065
  13. PENTAMIDINE [Concomitant]
     Active Substance: PENTAMIDINE
     Indication: Product used for unknown indication
     Dosage: UNK
     Route: 065
  14. VALACYCLOVIR [Concomitant]
     Active Substance: VALACYCLOVIR HYDROCHLORIDE
     Indication: Product used for unknown indication
     Dosage: UNK
     Route: 065
  15. TAMSULOSIN [Concomitant]
     Active Substance: TAMSULOSIN
     Indication: Product used for unknown indication
     Dosage: UNK
     Route: 065

REACTIONS (2)
  - Malignant neoplasm progression [Fatal]
  - Lymphocytic leukaemia [Fatal]
